FAERS Safety Report 7792237-9 (Version None)
Quarter: 2011Q4

REPORT INFORMATION
  Report Type: 
  Country: None (occurrence: None)
  Receive Date: 20111003
  Receipt Date: 20110923
  Transmission Date: 20120403
  Serious: Yes (Hospitalization)
  Sender: FDA-Public Use
  Company Number: US-ROCHE-773671

PATIENT
  Sex: Male
  Weight: 51 kg

DRUGS (18)
  1. LOMOTIL [Concomitant]
  2. XELODA [Suspect]
     Indication: GASTROOESOPHAGEAL CANCER
     Route: 065
     Dates: start: 20110315
  3. XELODA [Suspect]
     Dates: end: 20110919
  4. MIRTAZAPINE [Concomitant]
  5. HERCEPTIN [Suspect]
     Dates: start: 20110426
  6. HERCEPTIN [Suspect]
     Indication: GASTROOESOPHAGEAL CANCER
     Route: 065
     Dates: start: 20110315
  7. COMPAZINE [Concomitant]
  8. LORAZEPAM [Concomitant]
  9. AVASTIN [Suspect]
     Dates: start: 20110503, end: 20110913
  10. OXALIPLATIN [Suspect]
     Indication: GASTROOESOPHAGEAL CANCER
     Route: 065
     Dates: start: 20110315, end: 20110913
  11. METOPROLOL TARTRATE [Concomitant]
  12. ONDANSETRON HCL [Concomitant]
  13. CALCIUM CARBONATE [Concomitant]
  14. CITALOPRAM HYDROBROMIDE [Concomitant]
  15. METOCLOPRAMIDE HYDROCHLORIDE [Concomitant]
  16. AVASTIN [Suspect]
     Indication: GASTROOESOPHAGEAL CANCER
     Route: 065
     Dates: start: 20110308
  17. DEXAMETHASONE [Concomitant]
  18. LANSOPRAZOLE [Concomitant]

REACTIONS (3)
  - DIARRHOEA [None]
  - DEHYDRATION [None]
  - PALMAR ERYTHEMA [None]
